FAERS Safety Report 12898714 (Version 1)
Quarter: 2016Q4

REPORT INFORMATION
  Report Type: Report from Study
  Country: MX (occurrence: MX)
  Receive Date: 20161101
  Receipt Date: 20161101
  Transmission Date: 20170207
  Serious: Yes (Disabling)
  Sender: FDA-Public Use
  Company Number: MX-ORION CORPORATION ORION PHARMA-ENTC2016-0637

PATIENT
  Sex: Female

DRUGS (1)
  1. STALEVO [Suspect]
     Active Substance: CARBIDOPA\ENTACAPONE\LEVODOPA
     Indication: CEREBRAL DISORDER
     Dosage: STRENGTH: 150/37.5/200 MG
     Route: 065
     Dates: start: 2013, end: 2015

REACTIONS (6)
  - Dehydration [Unknown]
  - Hypokinesia [Unknown]
  - Product use issue [Unknown]
  - Aphasia [Unknown]
  - Decubitus ulcer [Unknown]
  - Bone disorder [Unknown]
